FAERS Safety Report 23538276 (Version 2)
Quarter: 2024Q1

REPORT INFORMATION
  Report Type: Report from Study
  Country: US (occurrence: US)
  Receive Date: 20240219
  Receipt Date: 20240301
  Transmission Date: 20240410
  Serious: Yes (Hospitalization, Other)
  Sender: FDA-Public Use
  Company Number: US-BAXTER-2024BAX012879

PATIENT
  Age: 67 Year
  Sex: Male
  Weight: 87.982 kg

DRUGS (40)
  1. CYCLOPHOSPHAMIDE [Suspect]
     Active Substance: CYCLOPHOSPHAMIDE
     Indication: B-cell lymphoma
     Dosage: 1000 MG
     Route: 042
     Dates: start: 20240125, end: 20240125
  2. CYCLOPHOSPHAMIDE [Suspect]
     Active Substance: CYCLOPHOSPHAMIDE
     Indication: Acute lymphocytic leukaemia
     Dosage: 1000 MG
     Route: 042
     Dates: start: 20240126, end: 20240126
  3. CYCLOPHOSPHAMIDE [Suspect]
     Active Substance: CYCLOPHOSPHAMIDE
     Dosage: 1000 MG
     Route: 042
     Dates: start: 20240127, end: 20240127
  4. CYCLOPHOSPHAMIDE [Suspect]
     Active Substance: CYCLOPHOSPHAMIDE
     Dosage: UNK, AS A PART OF R-CHOP REGIMEN
     Route: 065
  5. DOXORUBICIN [Suspect]
     Active Substance: DOXORUBICIN
     Indication: Diffuse large B-cell lymphoma
     Dosage: UNK, AS APRT OF R-CHOP REGIMEN
     Route: 065
  6. DOXORUBICIN [Suspect]
     Active Substance: DOXORUBICIN
     Dosage: UNK, AS A PART OF R-EPOCH REGIMEN
     Route: 065
  7. FLUDARABINE [Suspect]
     Active Substance: FLUDARABINE PHOSPHATE
     Indication: B-cell lymphoma
     Dosage: 42 MG
     Route: 042
     Dates: start: 20240125, end: 20240125
  8. FLUDARABINE [Suspect]
     Active Substance: FLUDARABINE PHOSPHATE
     Indication: Acute lymphocytic leukaemia
     Dosage: 42 MG
     Route: 042
     Dates: start: 20240126, end: 20240126
  9. FLUDARABINE [Suspect]
     Active Substance: FLUDARABINE PHOSPHATE
     Dosage: 42 MG
     Route: 042
     Dates: start: 20240127, end: 20240127
  10. FAMOTIDINE [Concomitant]
     Active Substance: FAMOTIDINE
     Indication: Gastrooesophageal reflux disease
     Dosage: UNK, START DATE: SEP-2023
     Route: 048
  11. LEVOTHYROXINE [Concomitant]
     Active Substance: LEVOTHYROXINE\LEVOTHYROXINE SODIUM
     Indication: Hypothyroidism
     Dosage: UNK, (START DATE:2019)
     Route: 048
  12. INSULIN LISPRO [Concomitant]
     Active Substance: INSULIN LISPRO
     Indication: Diabetes mellitus
     Dosage: UNK, (START DATE:2004)
     Route: 058
  13. ZINC GLUCONATE [Concomitant]
     Active Substance: ZINC GLUCONATE
     Indication: Prophylaxis
     Dosage: UNK, (START DATE: 2021)
     Route: 048
  14. ZINC PICOLINATE [Concomitant]
     Active Substance: ZINC PICOLINATE
     Indication: Prophylaxis
     Dosage: UNK, (START DATE:2021)
     Route: 048
  15. GUAIFENESIN [Concomitant]
     Active Substance: GUAIFENESIN
     Indication: Allergy to animal
     Dosage: UNK, (START DATE:2009)
     Route: 048
  16. ASCORBIC ACID [Concomitant]
     Active Substance: ASCORBIC ACID
     Indication: Prophylaxis
     Dosage: UNK, (START DATE:1999)
     Route: 048
  17. CHOLECALCIFEROL [Concomitant]
     Active Substance: CHOLECALCIFEROL
     Indication: Prophylaxis
     Dosage: UNK, (START DATE:2021)
     Route: 048
  18. VITAMIN E [Concomitant]
     Active Substance: .ALPHA.-TOCOPHEROL
     Indication: Prophylaxis
     Dosage: UNK, (START DATE:2019)
     Route: 048
  19. PHENYLEPHRINE HYDROCHLORIDE [Concomitant]
     Active Substance: PHENYLEPHRINE HYDROCHLORIDE
     Indication: Allergy to animal
     Dosage: UNK, (START DATE:2004)
     Route: 045
  20. PHENYLEPHRINE HYDROCHLORIDE [Concomitant]
     Active Substance: PHENYLEPHRINE HYDROCHLORIDE
     Indication: Hypersensitivity
  21. COLACE [Concomitant]
     Active Substance: DOCUSATE SODIUM
     Indication: Constipation
     Dosage: UNK, (START DATE: JAN 2023)
     Route: 048
  22. ASPIRIN [Concomitant]
     Active Substance: ASPIRIN
     Indication: Supraventricular tachycardia
     Dosage: UNK, (START DATE:2009)
     Route: 048
  23. ALLOPURINOL [Concomitant]
     Active Substance: ALLOPURINOL
     Indication: Blood uric acid
     Dosage: UNK
     Route: 048
     Dates: start: 20240124
  24. MELATONIN [Concomitant]
     Active Substance: MELATONIN
     Indication: Insomnia
     Dosage: UNK
     Route: 048
     Dates: start: 20240125
  25. LEVAQUIN [Concomitant]
     Active Substance: LEVOFLOXACIN
     Indication: Product used for unknown indication
     Dosage: UNK
     Route: 048
     Dates: start: 20240130, end: 20240130
  26. MAGNESIUM SULFATE [Concomitant]
     Active Substance: MAGNESIUM SULFATE\MAGNESIUM SULFATE HEPTAHYDRATE
     Indication: Electrolyte substitution therapy
     Dosage: UNK
     Route: 042
     Dates: start: 20240131, end: 20240131
  27. POTASSIUM CHLORIDE [Concomitant]
     Active Substance: POTASSIUM CHLORIDE
     Indication: Electrolyte substitution therapy
     Dosage: UNK
     Route: 048
     Dates: start: 20240131, end: 20240131
  28. TYLENOL [Concomitant]
     Active Substance: ACETAMINOPHEN
     Indication: Prophylaxis
     Dosage: UNK
     Route: 048
     Dates: start: 20240130, end: 20240130
  29. BENADRYL [Concomitant]
     Active Substance: DIPHENHYDRAMINE HYDROCHLORIDE
     Indication: Prophylaxis
     Dosage: UNK
     Route: 048
     Dates: start: 20240130, end: 20240130
  30. TAMSULOSIN [Concomitant]
     Active Substance: TAMSULOSIN
     Indication: Nephrolithiasis
     Dosage: UNK, (START DATE:2020)
     Route: 048
  31. SENNA [Concomitant]
     Active Substance: SENNA LEAF\SENNOSIDES\SENNOSIDES A AND B
     Indication: Constipation
     Dosage: UNK, (START DATE:JAN-2023)
     Route: 048
  32. SPIRONOLACTONE [Concomitant]
     Active Substance: SPIRONOLACTONE
     Indication: Hyperlipidaemia
     Dosage: UNK, (START DATE: MAR-2023), 10 MONTHS
     Route: 048
     Dates: end: 20240125
  33. ACYCLOVIR [Concomitant]
     Active Substance: ACYCLOVIR
     Indication: Prophylaxis
     Dosage: UNK, (START DATE: OCT-2023)
     Route: 048
  34. MIRALAX [Concomitant]
     Active Substance: POLYETHYLENE GLYCOL 3350
     Indication: Constipation
     Dosage: UNK, START DATE: JAN-2023
     Route: 048
  35. PSYLLIUM HUSK [Concomitant]
     Active Substance: PSYLLIUM HUSK
     Indication: Constipation
     Dosage: UNK, START DATE: JAN-2023
     Route: 048
  36. LASIX [Concomitant]
     Active Substance: FUROSEMIDE
     Indication: Prophylaxis
     Dosage: UNK, START DATE: 2020
     Route: 048
  37. ZOFRAN [Concomitant]
     Active Substance: ONDANSETRON HYDROCHLORIDE
     Indication: Prophylaxis
     Dosage: UNK, START DATE: FEB-2023
     Route: 048
  38. CIPROFLOXACIN [Concomitant]
     Active Substance: CIPROFLOXACIN
     Indication: Prophylaxis
     Dosage: UNK, START DATE: MAR-2023
     Route: 048
  39. BACTRIM DS [Concomitant]
     Active Substance: SULFAMETHOXAZOLE\TRIMETHOPRIM
     Indication: Prophylaxis
     Dosage: UNK, START DATE: OCT-2023
     Route: 048
  40. COREG [Concomitant]
     Active Substance: CARVEDILOL
     Indication: Supraventricular tachycardia
     Dosage: UNK, START DATE: MAR-2023
     Route: 048

REACTIONS (1)
  - Cytokine release syndrome [Recovered/Resolved]

NARRATIVE: CASE EVENT DATE: 20240204
